FAERS Safety Report 25023728 (Version 1)
Quarter: 2025Q1

REPORT INFORMATION
  Report Type: Spontaneous
  Country: US (occurrence: US)
  Receive Date: 20250228
  Receipt Date: 20250228
  Transmission Date: 20250409
  Serious: Yes (Disabling, Other)
  Sender: BOEHRINGER INGELHEIM
  Company Number: US-Komodo Health-a23aa0000061EDZAA2

PATIENT
  Age: 86 Year
  Sex: Female

DRUGS (1)
  1. SPIRIVA RESPIMAT [Suspect]
     Active Substance: TIOTROPIUM BROMIDE
     Indication: Dyspnoea

REACTIONS (3)
  - Fall [Unknown]
  - Hip fracture [Unknown]
  - Off label use [Unknown]

NARRATIVE: CASE EVENT DATE: 20240101
